FAERS Safety Report 6781438-4 (Version None)
Quarter: 2010Q2

REPORT INFORMATION
  Report Type: 
  Country: None (occurrence: None)
  Receive Date: 20100621
  Receipt Date: 20100614
  Transmission Date: 20101027
  Serious: Yes (Hospitalization, Other)
  Sender: FDA-Public Use
  Company Number: US-SANOFI-AVENTIS-2010SA034426

PATIENT
  Age: 79 Year
  Sex: Male

DRUGS (6)
  1. PLAVIX [Suspect]
     Route: 048
     Dates: start: 20090101, end: 20100525
  2. ASPIRIN [Suspect]
     Route: 065
     Dates: end: 20100525
  3. ASPIRIN [Suspect]
     Route: 065
     Dates: start: 20100601
  4. ANTIHYPERTENSIVES [Concomitant]
  5. CHOLESTEROL [Concomitant]
  6. VITAMINS [Concomitant]

REACTIONS (8)
  - ASTHENIA [None]
  - BLOOD PRESSURE INCREASED [None]
  - BLOOD URINE PRESENT [None]
  - CARDIAC FAILURE CONGESTIVE [None]
  - DYSPNOEA [None]
  - FLUID RETENTION [None]
  - HAEMORRHAGE [None]
  - SWELLING [None]
